FAERS Safety Report 9919317 (Version 1)
Quarter: 2014Q1

REPORT INFORMATION
  Report Type: Spontaneous
  Country: FR (occurrence: FR)
  Receive Date: 20140224
  Receipt Date: 20140224
  Transmission Date: 20141002
  Serious: Yes (Other)
  Sender: FDA-Public Use
  Company Number: FR-TEVA-463345ISR

PATIENT
  Age: 40 Year
  Sex: Female

DRUGS (1)
  1. COPAXONE [Suspect]
     Dates: start: 201311

REACTIONS (13)
  - Multiple sclerosis relapse [Not Recovered/Not Resolved]
  - Diplegia [Not Recovered/Not Resolved]
  - Paraesthesia [Not Recovered/Not Resolved]
  - Malaise [Recovered/Resolved]
  - Hot flush [Recovered/Resolved]
  - Heart rate increased [Recovered/Resolved]
  - Pain in extremity [Recovered/Resolved]
  - Pain in extremity [Recovered/Resolved]
  - Tremor [Recovered/Resolved]
  - Influenza [Not Recovered/Not Resolved]
  - Pyrexia [Not Recovered/Not Resolved]
  - Dizziness [Not Recovered/Not Resolved]
  - Nausea [Not Recovered/Not Resolved]
